FAERS Safety Report 12974343 (Version 5)
Quarter: 2018Q2

REPORT INFORMATION
  Report Type: Report from Study
  Country: JP (occurrence: JP)
  Receive Date: 20161125
  Receipt Date: 20180507
  Transmission Date: 20180711
  Serious: Yes (Life-Threatening, Hospitalization, Other)
  Sender: FDA-Public Use
  Company Number: JP-ALXN-A201609074AA

PATIENT
  Age: 51 Year
  Sex: Female
  Weight: 52 kg

DRUGS (2)
  1. SOLIRIS [Suspect]
     Active Substance: ECULIZUMAB
     Indication: PAROXYSMAL NOCTURNAL HAEMOGLOBINURIA
     Dosage: 600 MG, QW
     Route: 042
     Dates: start: 20160823, end: 20160914
  2. SOLIRIS [Suspect]
     Active Substance: ECULIZUMAB
     Dosage: 900 MG, Q2W
     Route: 042
     Dates: start: 20160921

REACTIONS (4)
  - Myelodysplastic syndrome [Recovered/Resolved]
  - Inappropriate schedule of drug administration [Unknown]
  - Condition aggravated [Recovered/Resolved]
  - Haemolysis [Recovered/Resolved]

NARRATIVE: CASE EVENT DATE: 20170426
